FAERS Safety Report 23972291 (Version 1)
Quarter: 2024Q2

REPORT INFORMATION
  Report Type: Spontaneous
  Country: JP (occurrence: JP)
  Receive Date: 20240613
  Receipt Date: 20240613
  Transmission Date: 20240715
  Serious: Yes (Other)
  Sender: FDA-Public Use
  Company Number: JP-MSD-2406JPN001129JAA

PATIENT
  Age: 8 Decade
  Sex: Female

DRUGS (1)
  1. KEYTRUDA [Suspect]
     Active Substance: PEMBROLIZUMAB
     Indication: Ureteric cancer
     Dosage: UNK
     Route: 065

REACTIONS (7)
  - Cardiomyopathy [Unknown]
  - Immune-mediated adrenal insufficiency [Unknown]
  - Myasthenia gravis [Unknown]
  - Hypochloraemia [Unknown]
  - Hypoglycaemia [Unknown]
  - Malaise [Unknown]
  - Hyponatraemia [Unknown]
